FAERS Safety Report 5041536-2 (Version None)
Quarter: 2006Q2

REPORT INFORMATION
  Report Type: 
  Country: None (occurrence: None)
  Receive Date: 20060627
  Receipt Date: 20060614
  Transmission Date: 20061013
  Serious: Yes (Life-Threatening, Other)
  Sender: FDA-Public Use
  Company Number: 2006076258

PATIENT
  Age: 61 Year
  Sex: Female
  Weight: 52.1637 kg

DRUGS (5)
  1. LIPITOR [Suspect]
     Indication: TYPE II HYPERLIPIDAEMIA
     Dosage: 4 YEARS AGO
  2. CARDIZEM CD [Concomitant]
  3. SYNTHROID [Concomitant]
  4. HYDROCHLOROTHIAZIDE [Concomitant]
  5. ZETIA [Concomitant]

REACTIONS (3)
  - AMNESIA [None]
  - BREAST CANCER RECURRENT [None]
  - STRESS AT WORK [None]
